FAERS Safety Report 4318381-6 (Version None)
Quarter: 2004Q1

REPORT INFORMATION
  Report Type: 
  Country: None (occurrence: None)
  Receive Date: 20040315
  Receipt Date: 20040304
  Transmission Date: 20041129
  Serious: Yes (Hospitalization)
  Sender: FDA-Public Use
  Company Number: GB-JNJFOC-20040200990

PATIENT
  Age: 66 Year
  Sex: Male

DRUGS (4)
  1. REMICADE [Suspect]
     Indication: RENAL CELL CARCINOMA STAGE UNSPECIFIED
     Dosage: 380 MG, 1 IN 1 DAY, INTRAVENOUS
     Route: 042
     Dates: start: 20031203, end: 20031203
  2. WARFARIN SODIUM [Concomitant]
  3. PENICILLIN [Concomitant]
  4. GAVISCON [Concomitant]

REACTIONS (2)
  - BENIGN PROSTATIC HYPERPLASIA [None]
  - HAEMATURIA [None]
